FAERS Safety Report 11445043 (Version 2)
Quarter: 2015Q3

REPORT INFORMATION
  Report Type: Spontaneous
  Country: JP (occurrence: JP)
  Receive Date: 20150902
  Receipt Date: 20150908
  Transmission Date: 20151125
  Serious: No
  Sender: FDA-Public Use
  Company Number: JP-JNJFOC-20150821677

PATIENT
  Age: 80 Year
  Sex: Female

DRUGS (1)
  1. DUROTEP MT [Suspect]
     Active Substance: FENTANYL
     Indication: PRODUCT USED FOR UNKNOWN INDICATION
     Route: 062
     Dates: start: 20150813

REACTIONS (2)
  - Treatment noncompliance [Unknown]
  - Application site dermatitis [Recovering/Resolving]

NARRATIVE: CASE EVENT DATE: 20150819
